FAERS Safety Report 9904669 (Version 1)
Quarter: 2014Q1

REPORT INFORMATION
  Report Type: Spontaneous
  Country: AT (occurrence: AT)
  Receive Date: 20140218
  Receipt Date: 20140218
  Transmission Date: 20141002
  Serious: Yes (Hospitalization)
  Sender: FDA-Public Use
  Company Number: AT-PFIZER INC-2014040358

PATIENT
  Age: 58 Year
  Sex: Female

DRUGS (1)
  1. GEMCITABINE HYDROCHLORIDE [Suspect]
     Indication: CHOLANGIOCARCINOMA
     Dosage: 1.6 G (1000 MG/M2) CYCLIC

REACTIONS (1)
  - Thrombotic microangiopathy [Not Recovered/Not Resolved]
